FAERS Safety Report 9101363 (Version 2)
Quarter: 2013Q1

REPORT INFORMATION
  Report Type: Spontaneous
  Country: US (occurrence: US)
  Receive Date: 20130218
  Receipt Date: 20130318
  Transmission Date: 20140127
  Serious: Yes (Other)
  Sender: FDA-Public Use
  Company Number: US-ASTRAZENECA-2013SE10462

PATIENT
  Age: 57 Year
  Sex: Male

DRUGS (12)
  1. BRILINTA [Suspect]
     Indication: MYOCARDIAL INFARCTION
     Route: 048
  2. BRILINTA [Suspect]
     Indication: MYOCARDIAL INFARCTION
     Route: 048
     Dates: start: 201301, end: 20130124
  3. ASA [Concomitant]
  4. FOSINOPRIL [Concomitant]
  5. NORVASC [Concomitant]
  6. BISTOLIC [Concomitant]
     Dates: end: 20130122
  7. VYTORIN [Concomitant]
  8. HYDROCHLOROTHIAZIDE [Concomitant]
  9. CELEBREX [Concomitant]
  10. VALACYCLOVIR [Concomitant]
     Dosage: AS REQUIRED
  11. VIAGRA [Concomitant]
     Dosage: AS REQUIRED
  12. ALLOPURINOL [Concomitant]

REACTIONS (1)
  - Atrioventricular dissociation [Recovered/Resolved]
